FAERS Safety Report 19627700 (Version 1)
Quarter: 2021Q3

REPORT INFORMATION
  Report Type: Spontaneous
  Country: CN (occurrence: CN)
  Receive Date: 20210729
  Receipt Date: 20210729
  Transmission Date: 20211014
  Serious: Yes (Other)
  Sender: FDA-Public Use
  Company Number: CN-ASTRAZENECA-2021A637964

PATIENT
  Age: 44 Year
  Sex: Male
  Weight: 55 kg

DRUGS (1)
  1. IMFINZI [Suspect]
     Active Substance: DURVALUMAB
     Indication: NON-SMALL CELL LUNG CANCER STAGE III
     Dosage: 1000MG PER CYCLE
     Route: 030
     Dates: start: 20210428, end: 20210519

REACTIONS (2)
  - Neoplasm progression [Unknown]
  - Dyspnoea [Unknown]
